FAERS Safety Report 9144580 (Version 1)
Quarter: 2013Q1

REPORT INFORMATION
  Report Type: Spontaneous
  Country: FR (occurrence: FR)
  Receive Date: 20130306
  Receipt Date: 20130306
  Transmission Date: 20140127
  Serious: Yes (Hospitalization)
  Sender: FDA-Public Use
  Company Number: FR-FRI-1000040411

PATIENT
  Sex: Male

DRUGS (2)
  1. MILNACIPRAN [Suspect]
     Dosage: 100 MG
     Route: 048
  2. MILNACIPRAN [Suspect]
     Dosage: 50 MG
     Route: 048

REACTIONS (3)
  - Bladder dilatation [Unknown]
  - Urinary retention [Unknown]
  - Hypertensive crisis [Unknown]
